FAERS Safety Report 8117786-5 (Version None)
Quarter: 2012Q1

REPORT INFORMATION
  Report Type: 
  Country: None (occurrence: None)
  Receive Date: 20120207
  Receipt Date: 20120123
  Transmission Date: 20120608
  Serious: Yes (Death)
  Sender: FDA-Public Use
  Company Number: NL-TEVA-314819ISR

PATIENT
  Sex: Male

DRUGS (3)
  1. FENTANYL PCH [Suspect]
     Indication: PAIN
     Route: 062
  2. SYMORON [Concomitant]
     Indication: PAIN
     Route: 048
  3. MORPHINE [Concomitant]
     Indication: PAIN
     Route: 058

REACTIONS (2)
  - DRUG INEFFECTIVE [None]
  - PANCREATIC CARCINOMA [None]
